FAERS Safety Report 18731968 (Version 1)
Quarter: 2021Q1

REPORT INFORMATION
  Report Type: Spontaneous
  Country: JP (occurrence: JP)
  Receive Date: 20210112
  Receipt Date: 20210112
  Transmission Date: 20210419
  Serious: Yes (Hospitalization)
  Sender: FDA-Public Use
  Company Number: JP-ASTRAZENECA-2021A003026

PATIENT
  Sex: Female

DRUGS (3)
  1. SYMBICORT [Suspect]
     Active Substance: BUDESONIDE\FORMOTEROL FUMARATE DIHYDRATE
     Dosage: 60 DOSES,1 DF,UNKNOWN UNKNOWN
     Route: 055
  2. SYMBICORT [Suspect]
     Active Substance: BUDESONIDE\FORMOTEROL FUMARATE DIHYDRATE
     Dosage: 60 DOSES,2 DF,UNKNOWN UNKNOWN
     Route: 055
  3. SYMBICORT [Suspect]
     Active Substance: BUDESONIDE\FORMOTEROL FUMARATE DIHYDRATE
     Dosage: 60 DOSES,8 DF,UNKNOWN UNKNOWN
     Route: 055

REACTIONS (15)
  - Neuropathy peripheral [Unknown]
  - Product dose omission issue [Unknown]
  - Meningitis [Unknown]
  - Dysuria [Unknown]
  - Palpitations [Unknown]
  - Back pain [Unknown]
  - Dyspnoea [Unknown]
  - Loss of consciousness [Unknown]
  - Dizziness [Unknown]
  - Eating disorder [Unknown]
  - Urticaria [Unknown]
  - Defaecation disorder [Unknown]
  - Cough [Unknown]
  - Dysstasia [Unknown]
  - Muscular weakness [Unknown]
